FAERS Safety Report 5051941-6 (Version None)
Quarter: 2006Q3

REPORT INFORMATION
  Report Type: 
  Country: None (occurrence: None)
  Receive Date: 20060711
  Receipt Date: 20060623
  Transmission Date: 20061208
  Serious: Yes (Hospitalization)
  Sender: FDA-Public Use
  Company Number: US200606002512

PATIENT
  Sex: Female
  Weight: 96.6 kg

DRUGS (8)
  1. ZYPREXA [Suspect]
     Dates: start: 19971208, end: 20060101
  2. SYMBYAX [Concomitant]
  3. GEODON [Concomitant]
  4. HALDOL [Concomitant]
  5. TRILAFON [Concomitant]
  6. DEPAKOTE [Concomitant]
  7. WELLBUTRIN [Concomitant]
  8. TOLAZAMIDE (TOLAZAMIDE) [Concomitant]

REACTIONS (8)
  - ANGIOPATHY [None]
  - BLOOD CHOLESTEROL ABNORMAL [None]
  - BLOOD TRIGLYCERIDES INCREASED [None]
  - CARDIAC DISORDER [None]
  - DIABETES MELLITUS NON-INSULIN-DEPENDENT [None]
  - HYPERTENSION [None]
  - LIBIDO DECREASED [None]
  - VISUAL ACUITY REDUCED [None]
